FAERS Safety Report 18646112 (Version 1)
Quarter: 2020Q4

REPORT INFORMATION
  Report Type: Spontaneous
  Country: CN (occurrence: CN)
  Receive Date: 20201222
  Receipt Date: 20201222
  Transmission Date: 20210114
  Serious: Yes (Other)
  Sender: FDA-Public Use
  Company Number: CN-SUN PHARMACEUTICAL INDUSTRIES LTD-2020R1-272060

PATIENT
  Age: 53 Year
  Sex: Male

DRUGS (7)
  1. BEVACIZUMAB. [Suspect]
     Active Substance: BEVACIZUMAB
     Indication: ANGIOPATHY
     Dosage: 2 CYCLES
     Route: 065
  2. PACLITAXEL. [Suspect]
     Active Substance: PACLITAXEL
     Indication: CHEMOTHERAPY
     Dosage: 2 CYCLES
     Route: 065
  3. CARBOPLATIN. [Suspect]
     Active Substance: CARBOPLATIN
     Dosage: UNK(2 CYCLES)
     Route: 065
  4. CARBOPLATIN. [Suspect]
     Active Substance: CARBOPLATIN
     Indication: CHEMOTHERAPY
     Dosage: UNK(4 CYCLES)
     Route: 065
     Dates: start: 20151108
  5. ENDOSTAR [Concomitant]
     Active Substance: ENDOSTATIN
     Indication: PLEURAL EFFUSION
     Route: 065
  6. GEMCITABINE. [Suspect]
     Active Substance: GEMCITABINE
     Indication: CHEMOTHERAPY
     Dosage: 2 CYCLES
     Route: 065
  7. PEMETREXED. [Suspect]
     Active Substance: PEMETREXED
     Indication: CHEMOTHERAPY
     Dosage: UNK(4 CYCLES)
     Route: 065
     Dates: start: 20151108

REACTIONS (1)
  - Disease progression [Unknown]
